FAERS Safety Report 10597206 (Version 1)
Quarter: 2014Q4

REPORT INFORMATION
  Report Type: Spontaneous
  Country: US (occurrence: US)
  Receive Date: 20141121
  Receipt Date: 20141121
  Transmission Date: 20150529
  Serious: Yes (Other)
  Sender: FDA-Public Use
  Company Number: US-BRISTOL-MYERS SQUIBB COMPANY-21606041

PATIENT
  Age: 56 Year
  Sex: Male
  Weight: 117.97 kg

DRUGS (27)
  1. CRESTOR [Concomitant]
     Active Substance: ROSUVASTATIN CALCIUM
  2. ASPIRIN. [Concomitant]
     Active Substance: ASPIRIN
  3. LANTUS [Concomitant]
     Active Substance: INSULIN GLARGINE
  4. NAPROXEN. [Concomitant]
     Active Substance: NAPROXEN
  5. ZOLPIDEM TARTRATE. [Concomitant]
     Active Substance: ZOLPIDEM TARTRATE
  6. ALLOPURINOL. [Concomitant]
     Active Substance: ALLOPURINOL
  7. PRILOSEC [Concomitant]
     Active Substance: OMEPRAZOLE MAGNESIUM
  8. ZITHROMAX [Concomitant]
     Active Substance: AZITHROMYCIN DIHYDRATE
  9. GLUCOPHAGE [Suspect]
     Active Substance: METFORMIN HYDROCHLORIDE
     Route: 048
     Dates: start: 20090601
  10. HUMALOG [Concomitant]
     Active Substance: INSULIN LISPRO
  11. BYDUREON [Concomitant]
     Active Substance: EXENATIDE
  12. NITROSTAT [Concomitant]
     Active Substance: NITROGLYCERIN
     Indication: CHEST PAIN
  13. GABAPENTIN. [Concomitant]
     Active Substance: GABAPENTIN
  14. CHERATUSSIN AC [Concomitant]
     Active Substance: CODEINE PHOSPHATE\GUAIFENESIN
  15. METOPROLOL TARTRATE. [Concomitant]
     Active Substance: METOPROLOL TARTRATE
  16. OPANA ER [Concomitant]
     Active Substance: OXYMORPHONE HYDROCHLORIDE
  17. INSULIN [Concomitant]
     Active Substance: INSULIN NOS
     Dosage: 1DF: 75 UNITS
  18. LEVAQUIN [Concomitant]
     Active Substance: LEVOFLOXACIN
  19. CLOPIDOGREL BISULFATE. [Concomitant]
     Active Substance: CLOPIDOGREL BISULFATE
  20. VOLTAREN [Concomitant]
     Active Substance: DICLOFENAC SODIUM
  21. FENOFIBRATE. [Concomitant]
     Active Substance: FENOFIBRATE
  22. PEG 3350 + ELECTROLYTES [Concomitant]
  23. AMLODIPINE BESYLATE. [Concomitant]
     Active Substance: AMLODIPINE BESYLATE
  24. DIOVAN HCT [Concomitant]
     Active Substance: HYDROCHLOROTHIAZIDE\VALSARTAN
  25. ZETIA [Concomitant]
     Active Substance: EZETIMIBE
  26. PERCOCET TABS 10 MG/325 MG [Concomitant]
  27. NOVOLIN [Concomitant]
     Active Substance: INSULIN HUMAN

REACTIONS (2)
  - Blood pressure increased [Unknown]
  - Stress [Unknown]

NARRATIVE: CASE EVENT DATE: 20140317
